FAERS Safety Report 9261359 (Version 1)
Quarter: 2013Q2

REPORT INFORMATION
  Report Type: Spontaneous
  Country: BR (occurrence: BR)
  Receive Date: 20130429
  Receipt Date: 20130429
  Transmission Date: 20140414
  Serious: Yes (Other)
  Sender: FDA-Public Use
  Company Number: BR-PFIZER INC-2013129836

PATIENT
  Age: 43 Year
  Sex: Female

DRUGS (1)
  1. DALACIN C [Suspect]
     Dosage: 600

REACTIONS (1)
  - Deafness [Unknown]
